FAERS Safety Report 7820412-3 (Version None)
Quarter: 2011Q4

REPORT INFORMATION
  Report Type: 
  Country: None (occurrence: None)
  Receive Date: 20111013
  Receipt Date: 20110802
  Transmission Date: 20120403
  Serious: Yes (Death)
  Sender: FDA-Public Use
  Company Number: JPI-P-015901

PATIENT
  Age: 51 Year
  Sex: Male

DRUGS (4)
  1. XYREM [Suspect]
     Indication: NARCOLEPSY
     Dosage: 6 GM (3 GM, 2 IN 1 D), ORAL 9 GM (4.5 GM, 2 IN 1 D), ORAL 6 GM (3 GM, 2 IN 1 D),ORAL
     Route: 048
     Dates: start: 20110509, end: 20110523
  2. XYREM [Suspect]
     Indication: NARCOLEPSY
     Dosage: 6 GM (3 GM, 2 IN 1 D), ORAL 9 GM (4.5 GM, 2 IN 1 D), ORAL 6 GM (3 GM, 2 IN 1 D),ORAL
     Route: 048
     Dates: start: 20100728, end: 20100818
  3. XYREM [Suspect]
     Indication: NARCOLEPSY
     Dosage: 6 GM (3 GM, 2 IN 1 D), ORAL 9 GM (4.5 GM, 2 IN 1 D), ORAL 6 GM (3 GM, 2 IN 1 D),ORAL
     Route: 048
     Dates: start: 20100326, end: 20100604
  4. XYREM [Suspect]
     Indication: NARCOLEPSY
     Dosage: 6 GM (3 GM, 2 IN 1 D), ORAL 9 GM (4.5 GM, 2 IN 1 D), ORAL 6 GM (3 GM, 2 IN 1 D),ORAL
     Route: 048
     Dates: start: 20100819, end: 20110508

REACTIONS (3)
  - EMOTIONAL DISORDER [None]
  - DEPRESSION [None]
  - CRYING [None]
